FAERS Safety Report 6684820-9 (Version None)
Quarter: 2010Q2

REPORT INFORMATION
  Report Type: 
  Country: None (occurrence: None)
  Receive Date: 20100416
  Receipt Date: 20100316
  Transmission Date: 20101027
  Serious: No
  Sender: FDA-Public Use
  Company Number: US-BAYER-201016860NA

PATIENT
  Age: 27 Year
  Sex: Female

DRUGS (1)
  1. ULTRAVIST 300 [Suspect]
     Indication: DRUG USE FOR UNKNOWN INDICATION
     Dates: start: 20100315, end: 20100315

REACTIONS (2)
  - CHEST PAIN [None]
  - DYSPNOEA [None]
